FAERS Safety Report 8129909 (Version 2)
Quarter: 2015Q3

REPORT INFORMATION
  Report Type: Spontaneous
  Country: US (occurrence: US)
  Receive Date: 20110909
  Receipt Date: 20150730
  Transmission Date: 20151125
  Serious: Yes (Other)
  Sender: FDA-Public Use
  Company Number: US-ASTRAZENECA-2011SE52523

PATIENT
  Age: 54 Year
  Sex: Female

DRUGS (3)
  1. JANUVIA [Suspect]
     Active Substance: SITAGLIPTIN PHOSPHATE
     Indication: DIABETES MELLITUS
     Route: 065
  2. PLAVIX [Concomitant]
     Active Substance: CLOPIDOGREL BISULFATE
  3. NEXIUM [Suspect]
     Active Substance: ESOMEPRAZOLE MAGNESIUM
     Route: 048

REACTIONS (5)
  - Diabetes mellitus [Unknown]
  - Coronary artery occlusion [Unknown]
  - Gastrooesophageal reflux disease [Unknown]
  - Myocardial infarction [Unknown]
  - Drug dose omission [Unknown]

NARRATIVE: CASE EVENT DATE: 2009
